FAERS Safety Report 25208330 (Version 1)
Quarter: 2025Q2

REPORT INFORMATION
  Report Type: Spontaneous
  Country: US (occurrence: None)
  Receive Date: 20250416
  Receipt Date: 20250416
  Transmission Date: 20250717
  Serious: Yes (Disabling, Other)
  Sender: FDA-CTU
  Company Number: None

PATIENT
  Age: 59 Year
  Sex: Female
  Weight: 63 kg

DRUGS (9)
  1. OZEMPIC [Suspect]
     Active Substance: SEMAGLUTIDE
  2. Omnipod [Concomitant]
  3. insulin pump Insulin [Concomitant]
  4. DEXCOM [Concomitant]
  5. METFORMIN [Concomitant]
     Active Substance: METFORMIN HYDROCHLORIDE
  6. LOSARTAN [Concomitant]
     Active Substance: LOSARTAN
  7. METOPROLOL [Concomitant]
     Active Substance: METOPROLOL
  8. VITAMINS [Concomitant]
     Active Substance: VITAMINS
  9. MELATONIN [Concomitant]
     Active Substance: MELATONIN

REACTIONS (9)
  - Drug effect less than expected [None]
  - Neuralgia [None]
  - Back pain [None]
  - Musculoskeletal pain [None]
  - Loss of personal independence in daily activities [None]
  - Sleep disorder [None]
  - Depression [None]
  - Anger [None]
  - Therapy interrupted [None]

NARRATIVE: CASE EVENT DATE: 20241101
